FAERS Safety Report 13572288 (Version 1)
Quarter: 2017Q2

REPORT INFORMATION
  Report Type: Spontaneous
  Country: DE (occurrence: DE)
  Receive Date: 20170523
  Receipt Date: 20170523
  Transmission Date: 20170830
  Serious: Yes (Other)
  Sender: FDA-Public Use
  Company Number: DE-AUROBINDO-AUR-APL-2017-34443

PATIENT
  Age: 54 Year
  Sex: Male
  Weight: 75 kg

DRUGS (8)
  1. FLECAINIDE PUREN 100 MG TABLETS [Interacting]
     Active Substance: FLECAINIDE
     Dosage: DAILY APPLICATION
     Route: 048
     Dates: start: 201610, end: 20170215
  2. FLECAINIDE PUREN 100 MG TABLETS [Interacting]
     Active Substance: FLECAINIDE
     Dosage: 150 MG, UNK
     Route: 048
     Dates: start: 201610, end: 20170215
  3. FLECAINIDE PUREN 100 MG TABLETS [Interacting]
     Active Substance: FLECAINIDE
     Dosage: 250 MG, UNK
     Route: 048
     Dates: start: 20170506
  4. ST. JOHN^S WORT                    /01166801/ [Interacting]
     Active Substance: ST. JOHN^S WORT
     Dosage: 300 MG, DAILY
     Route: 048
     Dates: start: 201701, end: 201702
  5. FLECAINIDE PUREN 100 MG TABLETS [Suspect]
     Active Substance: FLECAINIDE
     Indication: ATRIAL FIBRILLATION
     Dosage: 100 MG, DAILY
     Route: 048
     Dates: start: 201603
  6. ST. JOHN^S WORT                    /01166801/ [Interacting]
     Active Substance: ST. JOHN^S WORT
     Dosage: 900 MG, DAILY
     Route: 048
     Dates: start: 201702, end: 201705
  7. FLECAINIDE PUREN 100 MG TABLETS [Interacting]
     Active Substance: FLECAINIDE
     Dosage: PILL IN THE POCKET
     Route: 048
     Dates: start: 2016
  8. FLECAINIDE PUREN 100 MG TABLETS [Interacting]
     Active Substance: FLECAINIDE
     Dosage: 250 MG, UNK
     Route: 048
     Dates: start: 20170506

REACTIONS (2)
  - Atrial fibrillation [Recovered/Resolved]
  - Drug interaction [Unknown]

NARRATIVE: CASE EVENT DATE: 20170215
